FAERS Safety Report 12602637 (Version 1)
Quarter: 2016Q3

REPORT INFORMATION
  Report Type: Spontaneous
  Country: US (occurrence: US)
  Receive Date: 20160728
  Receipt Date: 20160728
  Transmission Date: 20161109
  Serious: Yes (Hospitalization, Other)
  Sender: FDA-Public Use
  Company Number: US-GLAXOSMITHKLINE-US2016107778

PATIENT
  Sex: Female

DRUGS (2)
  1. VENTOLIN HFA [Suspect]
     Active Substance: ALBUTEROL SULFATE
     Indication: DYSPNOEA EXERTIONAL
  2. VENTOLIN HFA [Suspect]
     Active Substance: ALBUTEROL SULFATE
     Indication: DYSPNOEA
     Dosage: 2 PUFF(S), 1D
     Route: 055
     Dates: start: 2009

REACTIONS (9)
  - Medication error [Unknown]
  - Cervical vertebral fracture [Unknown]
  - Fall [Unknown]
  - Drug ineffective [Unknown]
  - Ill-defined disorder [Unknown]
  - Impaired driving ability [Not Recovered/Not Resolved]
  - Hospitalisation [Recovered/Resolved]
  - Cerebrovascular accident [Unknown]
  - Pulmonary function test abnormal [Unknown]

NARRATIVE: CASE EVENT DATE: 2013
